FAERS Safety Report 9535155 (Version 2)
Quarter: 2013Q3

REPORT INFORMATION
  Report Type: Spontaneous
  Country: US (occurrence: US)
  Receive Date: 20130918
  Receipt Date: 20130918
  Transmission Date: 20140515
  Serious: No
  Sender: FDA-Public Use
  Company Number: US-PURDUE-USA-2012-0091403

PATIENT
  Age: 44 Year
  Sex: Male
  Weight: 97.96 kg

DRUGS (1)
  1. INTERMEZZO [Suspect]
     Indication: INITIAL INSOMNIA
     Dosage: 1 TABLET, PRN
     Route: 060
     Dates: start: 20120726

REACTIONS (2)
  - Depressed mood [Recovered/Resolved]
  - Inappropriate schedule of drug administration [Unknown]
